FAERS Safety Report 8942928 (Version 4)
Quarter: 2013Q1

REPORT INFORMATION
  Report Type: Spontaneous
  Country: US (occurrence: None)
  Receive Date: 20121121
  Receipt Date: 20130110
  Transmission Date: 20140127
  Serious: Yes (Hospitalization, Other)
  Sender: FDA-Public Use
  Company Number: 2012-002331

PATIENT
  Age: 71 Year
  Sex: Female

DRUGS (23)
  1. ACTONEL (RISEDRONATE SODIUM) TABLET, 150MG [Suspect]
     Indication: OSTEOPOROSIS
     Dosage: ONCE
     Route: 048
     Dates: start: 20081031, end: 20100917
  2. ALENDRONATE(ALENDRONATE SODIUM) [Suspect]
     Indication: OSTEOPOROSIS
     Route: 048
     Dates: start: 20080611, end: 20081031
  3. FOSAMAX (ALENDRONATE SODIUM, COLECALCIFEROL) [Suspect]
     Indication: OSTEOPOROSIS
     Dosage: ONCE
     Route: 048
     Dates: start: 20070219, end: 20080611
  4. FOSAMAX PLUS D (ALENDRONATE SODIUM, COLECALCIFEROL) [Suspect]
     Indication: OSTEOPOROSIS
     Dosage: ONCE
     Route: 048
     Dates: start: 20060110, end: 20070219
  5. PREDNISONE (PREDNISONE) [Concomitant]
  6. METHOTREXATE (METHOTREXATE) [Concomitant]
  7. FOLIC ACID (FOLIC ACID) [Concomitant]
  8. ENBREL (ETANERCEPT) [Concomitant]
  9. HYDROCODONE BITARTRATE AND ACETAMINOPHEN (HYDROCODONE BITARTRATE, PARACETAMOL) [Concomitant]
  10. LORAZEPAM (LORAZEPAM) [Concomitant]
  11. NAPROXEN (NAPROXEN) [Concomitant]
  12. MELOXICAM (MELOXICAM) [Concomitant]
  13. TRAMADOL (TRAMADOL) [Concomitant]
  14. NEXIUM /01479302/ (ESOMEPRAZOLE MAGNESIUM) [Concomitant]
  15. FLUOXETINE (FLUOXETINE) [Concomitant]
  16. ZYPREXA (OLANZAPINE) [Concomitant]
  17. LAMOTRIGINE (LAMOTRIGINE) [Concomitant]
  18. DIVALPROEX (VALPROATE SEMISODIUM) [Concomitant]
  19. IMITREX /01044801/ (SUMATIRPTAN) [Concomitant]
  20. CLONIDINE (CLONIDINE) [Concomitant]
  21. CHLORHEXIDINE GLUCONATE (CHLORHEXIDINE GLUCONATE) [Concomitant]
  22. CALCIUM (CALCIUM) [Concomitant]
  23. VITAMIN D /00318501/ (COLECALCIFEROL) [Concomitant]

REACTIONS (23)
  - Femur fracture [None]
  - Pathological fracture [None]
  - Fracture displacement [None]
  - Stress fracture [None]
  - Arthralgia [None]
  - Gait disturbance [None]
  - Pain in extremity [None]
  - Fall [None]
  - Bone disorder [None]
  - Low turnover osteopathy [None]
  - Dysphagia [None]
  - No therapeutic response [None]
  - Limb discomfort [None]
  - Arthralgia [None]
  - Intervertebral disc degeneration [None]
  - Lumbar spinal stenosis [None]
  - Rotator cuff syndrome [None]
  - Gastrooesophageal reflux disease [None]
  - Confusional state [None]
  - Urinary tract infection [None]
  - Cataract [None]
  - Basal cell carcinoma [None]
  - Blood cortisol decreased [None]
